FAERS Safety Report 20738741 (Version 2)
Quarter: 2022Q2

REPORT INFORMATION
  Report Type: Spontaneous
  Country: SI (occurrence: SI)
  Receive Date: 20220422
  Receipt Date: 20220429
  Transmission Date: 20220721
  Serious: Yes (Hospitalization)
  Sender: FDA-Public Use
  Company Number: SI-MLMSERVICE-20220413-3500488-1

PATIENT
  Age: 55 Year
  Sex: Female

DRUGS (6)
  1. VENLAFAXINE [Suspect]
     Active Substance: VENLAFAXINE HYDROCHLORIDE
     Indication: Generalised anxiety disorder
     Route: 065
  2. TIANEPTINE [Suspect]
     Active Substance: TIANEPTINE
     Indication: Generalised anxiety disorder
     Route: 065
  3. PREGABALIN [Suspect]
     Active Substance: PREGABALIN
     Indication: Generalised anxiety disorder
     Route: 048
  4. PREGABALIN [Suspect]
     Active Substance: PREGABALIN
     Dosage: INCREASED TO 3X50 MG DAILY
     Route: 048
  5. PREGABALIN [Suspect]
     Active Substance: PREGABALIN
     Dosage: 2X150 MG DAILY
     Route: 048
  6. TRAZODONE [Suspect]
     Active Substance: TRAZODONE HYDROCHLORIDE
     Indication: Generalised anxiety disorder
     Route: 065

REACTIONS (2)
  - Toxicity to various agents [Unknown]
  - Intentional overdose [Unknown]
